FAERS Safety Report 8312785-2 (Version None)
Quarter: 2012Q2

REPORT INFORMATION
  Report Type: 
  Country: None (occurrence: None)
  Receive Date: 20120424
  Receipt Date: 20120410
  Transmission Date: 20120825
  Serious: Yes (Other)
  Sender: FDA-Public Use
  Company Number: 217176

PATIENT

DRUGS (1)
  1. CALCIPOTRIENE [Suspect]
     Indication: PRODUCT USED FOR UNKNOWN INDICATION
     Dosage: 3 IN 1 D, TOPICAL
     Route: 061

REACTIONS (2)
  - LIVER INJURY [None]
  - DRUG SCREEN POSITIVE [None]
